FAERS Safety Report 18558623 (Version 1)
Quarter: 2020Q4

REPORT INFORMATION
  Report Type: Spontaneous
  Country: DE (occurrence: DE)
  Receive Date: 20201130
  Receipt Date: 20201130
  Transmission Date: 20210114
  Serious: Yes (Life-Threatening, Hospitalization, Other)
  Sender: FDA-Public Use
  Company Number: DE-TEVA-2020-DE-1853063

PATIENT
  Age: 59 Year
  Sex: Male

DRUGS (6)
  1. ENALAPRIL [Concomitant]
     Active Substance: ENALAPRIL
     Dosage: 5 MG, 1-0-0.5-0
  2. BISOPROLOL/HYDROCHLOROTHIAZID [Suspect]
     Active Substance: BISOPROLOL FUMARATE\HYDROCHLOROTHIAZIDE
     Dosage: 1 DOSAGE FORMS DAILY; 5|12.5 MG, 1-0-0-0
     Route: 065
  3. FORMOTEROL AL 12MIKROGRAMM/DOSIS [Concomitant]
     Dosage: 24 MICROGRAM DAILY; 1-0-1-0
  4. COLECALCIFEROL (VITAMIN D) [Concomitant]
     Dosage: 2857.1429 IU (INTERNATIONAL UNIT) DAILY;  1X
  5. PANTOPRAZOL [Concomitant]
     Active Substance: PANTOPRAZOLE SODIUM
     Dosage: 20 MILLIGRAM DAILY;  0-0-1-0
  6. METFORMIN [Concomitant]
     Active Substance: METFORMIN HYDROCHLORIDE
     Dosage: 2 DOSAGE FORMS DAILY; 500 MG, 0-0-2-0

REACTIONS (2)
  - Bradycardia [Unknown]
  - Syncope [Unknown]
